FAERS Safety Report 4639385-X (Version None)
Quarter: 2005Q2

REPORT INFORMATION
  Report Type: 
  Country: None (occurrence: None)
  Receive Date: 20050418
  Receipt Date: 20050408
  Transmission Date: 20051028
  Serious: Yes (Death)
  Sender: FDA-Public Use
  Company Number: 163-20785-05030466

PATIENT
  Age: 50 Year
  Sex: Male

DRUGS (3)
  1. THALOMID [Suspect]
     Indication: AMYLOIDOSIS
     Dosage: 200 MG, DAILY,ORAL
     Route: 048
     Dates: start: 20050202, end: 20050225
  2. THALOMID [Suspect]
     Indication: MULTIPLE MYELOMA
     Dosage: 200 MG, DAILY,ORAL
     Route: 048
     Dates: start: 20050202, end: 20050225
  3. ASPIRIN [Concomitant]

REACTIONS (2)
  - EMBOLISM [None]
  - SUDDEN DEATH [None]
